FAERS Safety Report 9652161 (Version 2)
Quarter: 2013Q4

REPORT INFORMATION
  Report Type: Report from Study
  Country: IT (occurrence: IT)
  Receive Date: 20131029
  Receipt Date: 20131107
  Transmission Date: 20140711
  Serious: Yes (Disabling, Congenital Anomaly)
  Sender: FDA-Public Use
  Company Number: IT-ROCHE-1293668

PATIENT
  Sex: Female

DRUGS (3)
  1. TRASTUZUMAB [Suspect]
     Indication: COLON CANCER
     Dosage: FIRST DOSE WAS 4 MG/KG THEN 2 MG/KG
     Route: 042
     Dates: start: 20130612, end: 20131002
  2. LAPATINIB [Suspect]
     Indication: COLON CANCER
     Dosage: LAST DOSE ON 09/OCT/2013
     Route: 048
     Dates: start: 20130612, end: 20131009
  3. CO-EFFERALGAN [Concomitant]
     Indication: PAIN
     Dosage: 500+30 MCG OS
     Route: 065

REACTIONS (2)
  - Abortion spontaneous [Unknown]
  - Exposure via father [Unknown]
